FAERS Safety Report 5977605-X (Version None)
Quarter: 2008Q4

REPORT INFORMATION
  Report Type: 
  Country: None (occurrence: None)
  Receive Date: 20081201
  Receipt Date: 20081201
  Transmission Date: 20090506
  Serious: Yes (Other)
  Sender: FDA-Public Use
  Company Number: None

PATIENT
  Age: 42 Year
  Sex: Male
  Weight: 90.7194 kg

DRUGS (2)
  1. LEVAQUIN [Suspect]
     Indication: PNEUMONIA
     Dosage: 750 MG BID IV
     Route: 042
     Dates: start: 20080601, end: 20081001
  2. LEVAQUIN [Suspect]
     Indication: PNEUMONIA
     Dosage: 750MG BID ORAL
     Route: 048

REACTIONS (1)
  - TENDON RUPTURE [None]
